FAERS Safety Report 5390354-4 (Version None)
Quarter: 2007Q3

REPORT INFORMATION
  Report Type: 
  Country: None (occurrence: None)
  Receive Date: 20070718
  Receipt Date: 20070712
  Transmission Date: 20080115
  Serious: Yes (Hospitalization)
  Sender: FDA-Public Use
  Company Number: CA-JNJFOC-20070703050

PATIENT
  Age: 51 Year
  Sex: Female

DRUGS (3)
  1. RISPERDAL CONSTA [Suspect]
     Indication: SCHIZOPHRENIA
     Route: 030
  2. THYROID TAB [Concomitant]
  3. CHOLESTEROL MEDICATION [Concomitant]

REACTIONS (4)
  - APHASIA [None]
  - HALLUCINATION, AUDITORY [None]
  - PARANOIA [None]
  - SOCIAL AVOIDANT BEHAVIOUR [None]
